FAERS Safety Report 4367246-2 (Version None)
Quarter: 2004Q2

REPORT INFORMATION
  Report Type: 
  Country: None (occurrence: None)
  Receive Date: 20040524
  Receipt Date: 20040510
  Transmission Date: 20050107
  Serious: Yes (Death)
  Sender: FDA-Public Use
  Company Number: 1607

PATIENT
  Age: 46 Year
  Sex: Male

DRUGS (4)
  1. AVINZA [Suspect]
     Dosage: 90 MG TID PO
     Route: 048
     Dates: start: 20040503, end: 20040508
  2. OXYCODONE [Concomitant]
  3. SERTRALINE [Concomitant]
  4. UNSPECIFIED PSYCHIATRIC MEDICATION [Concomitant]

REACTIONS (1)
  - DEATH [None]
